FAERS Safety Report 17144875 (Version 1)
Quarter: 2019Q4

REPORT INFORMATION
  Report Type: Spontaneous
  Country: TW (occurrence: TW)
  Receive Date: 20191212
  Receipt Date: 20191212
  Transmission Date: 20200122
  Serious: Yes (Other)
  Sender: FDA-Public Use
  Company Number: TW-PFIZER INC-2019451892

PATIENT
  Age: 49 Year
  Sex: Female

DRUGS (2)
  1. CARBOPLATIN. [Concomitant]
     Active Substance: CARBOPLATIN
     Indication: OVARIAN ENDOMETRIOID CARCINOMA
     Dosage: UNK, EVERY 3 WEEKS (AREA OF CURVE 5) MODIFIED JGOG3016 REGIMEN
  2. PACLITAXEL. [Suspect]
     Active Substance: PACLITAXEL
     Indication: OVARIAN ENDOMETRIOID CARCINOMA
     Dosage: 80 MG/M2, WEEKLY (DOSE-DENSE WEEKLY SCHEDULE OF PACLITAXEL) MODIFIED JGOG3016 REGIMEN

REACTIONS (5)
  - Eczema [Recovering/Resolving]
  - Skin toxicity [Recovered/Resolved]
  - Folliculitis [Recovering/Resolving]
  - Acute generalised exanthematous pustulosis [Recovered/Resolved]
  - Dermatitis [Recovering/Resolving]
